FAERS Safety Report 10510228 (Version 1)
Quarter: 2014Q4

REPORT INFORMATION
  Report Type: Spontaneous
  Country: US (occurrence: None)
  Receive Date: 20141009
  Receipt Date: 20141009
  Transmission Date: 20150528
  Serious: Yes (Life-Threatening)
  Sender: FDA-Public Use
  Company Number: None

PATIENT
  Age: 66 Year
  Sex: Female
  Weight: 48.08 kg

DRUGS (6)
  1. PROTEIN POWDER [Concomitant]
  2. AREDS [Concomitant]
  3. CIPROFLOXACIN. [Suspect]
     Active Substance: CIPROFLOXACIN
     Indication: DIVERTICULITIS
     Dosage: BID, PO.
  4. FLAGYL [Suspect]
     Active Substance: METRONIDAZOLE\METRONIDAZOLE HYDROCHLORIDE
     Indication: DIVERTICULITIS
     Dosage: 500 MG, 1 TABLET 3 TIMES/DAY, 3 TIMES TWICE, ORALLY
     Route: 048
     Dates: start: 20120114, end: 20120119
  5. VITAMIN ALL [Concomitant]
  6. FISH OIL [Concomitant]
     Active Substance: FISH OIL

REACTIONS (4)
  - Weight decreased [None]
  - Vomiting [None]
  - Visual impairment [None]
  - Diarrhoea [None]

NARRATIVE: CASE EVENT DATE: 20120114
